FAERS Safety Report 7556406-5 (Version None)
Quarter: 2011Q2

REPORT INFORMATION
  Report Type: 
  Country: None (occurrence: None)
  Receive Date: 20110620
  Receipt Date: 20110608
  Transmission Date: 20111010
  Serious: No
  Sender: FDA-Public Use
  Company Number: US-JNJFOC-20110605215

PATIENT
  Age: 59 Year
  Sex: Male

DRUGS (7)
  1. PRAZOSIN HCL [Concomitant]
     Indication: NIGHTMARE
     Route: 065
  2. ABILIFY [Concomitant]
     Indication: SCHIZOAFFECTIVE DISORDER
     Route: 065
  3. HALDOL [Concomitant]
     Indication: SCHIZOAFFECTIVE DISORDER
  4. HALDOL [Concomitant]
     Indication: SCHIZOAFFECTIVE DISORDER
     Dates: end: 20110301
  5. OLANZAPINE [Concomitant]
     Indication: SCHIZOAFFECTIVE DISORDER
     Route: 065
  6. INVEGA SUSTENNA [Suspect]
     Indication: SCHIZOAFFECTIVE DISORDER
     Route: 030
     Dates: start: 20110301
  7. PRILOSEC [Concomitant]
     Route: 065

REACTIONS (2)
  - INJECTION SITE PAIN [None]
  - INJECTION SITE REACTION [None]
